FAERS Safety Report 7001787-4 (Version None)
Quarter: 2010Q3

REPORT INFORMATION
  Report Type: 
  Country: None (occurrence: None)
  Receive Date: 20100920
  Receipt Date: 20071109
  Transmission Date: 20110219
  Serious: Yes (Hospitalization, Other)
  Sender: FDA-Public Use
  Company Number: US-ASTRAZENECA-2007UW14361

PATIENT
  Age: 14928 Day
  Sex: Male

DRUGS (12)
  1. SEROQUEL [Suspect]
     Indication: SLEEP DISORDER
     Route: 048
     Dates: start: 20041201, end: 20060101
  2. SEROQUEL [Suspect]
     Dosage: 100 MG THREE TIMES A DAY WITH MEALS AND 200 MG AT BEDTIME
     Route: 048
     Dates: start: 20051113
  3. PAXIL [Concomitant]
     Dates: start: 20051113
  4. TENORMIN [Concomitant]
     Dates: start: 20051113
  5. LISINOPRIL [Concomitant]
     Dates: start: 20051113
  6. ASPIRIN [Concomitant]
     Dates: start: 20051113
  7. TRICOR [Concomitant]
     Dates: start: 20051113
  8. HYDROCHLOROTHIAZIDE [Concomitant]
     Route: 048
     Dates: start: 20050711
  9. PREVACID [Concomitant]
     Route: 048
     Dates: start: 20050801
  10. NITROGLYCERIN [Concomitant]
     Route: 060
     Dates: start: 20050705
  11. NEXIUM [Concomitant]
     Route: 048
     Dates: start: 20060607
  12. HYDROCODONE BITARTRATE AND ACETAMINOPHEN [Concomitant]
     Dosage: 5 MG/ 500 MG FOUR TIMES A DAY
     Route: 048
     Dates: start: 20050622

REACTIONS (3)
  - DIABETES MELLITUS INADEQUATE CONTROL [None]
  - DIABETIC KETOACIDOSIS [None]
  - TYPE 1 DIABETES MELLITUS [None]
